FAERS Safety Report 16119535 (Version 1)
Quarter: 2019Q1

REPORT INFORMATION
  Report Type: Spontaneous
  Country: DE (occurrence: DE)
  Receive Date: 20190326
  Receipt Date: 20190326
  Transmission Date: 20190418
  Serious: Yes (Hospitalization)
  Sender: FDA-Public Use
  Company Number: PHHY2019DE065174

PATIENT
  Age: 17 Year
  Sex: Female
  Weight: 86 kg

DRUGS (4)
  1. MIRTAZAPINE. [Suspect]
     Active Substance: MIRTAZAPINE
     Indication: SUICIDAL IDEATION
     Dosage: 7.5 MG, UNK (2 BLISTER VON)
     Route: 048
  2. OXAZEPAM. [Concomitant]
     Active Substance: OXAZEPAM
     Indication: SUICIDAL IDEATION
     Dosage: 50 DF, UNK
     Route: 048
  3. AMITRIPTYLINE [Suspect]
     Active Substance: AMITRIPTYLINE
     Indication: ADJUSTMENT DISORDER
     Dosage: 10-10-20 TROPFEN
     Route: 048
  4. DIAZEPAM. [Concomitant]
     Active Substance: DIAZEPAM
     Indication: SUICIDAL IDEATION
     Dosage: 3 DF, UNK (2 TO 3 TABLETTEN)
     Route: 048

REACTIONS (4)
  - Intentional overdose [Recovered/Resolved]
  - Psychomotor retardation [Recovered/Resolved]
  - Suicidal ideation [Unknown]
  - General physical health deterioration [Recovered/Resolved]

NARRATIVE: CASE EVENT DATE: 20190101
